FAERS Safety Report 22272921 (Version 1)
Quarter: 2023Q2

REPORT INFORMATION
  Report Type: Spontaneous
  Country: US (occurrence: US)
  Receive Date: 20230502
  Receipt Date: 20230502
  Transmission Date: 20230721
  Serious: No
  Sender: FDA-Public Use
  Company Number: US-BAYER-2023A046657

PATIENT
  Age: 36 Year
  Sex: Female

DRUGS (1)
  1. ESTRADIOL [Suspect]
     Active Substance: ESTRADIOL
     Dosage: 0.1 MG 1 WEEK
     Route: 062
     Dates: start: 202302

REACTIONS (2)
  - Product dose omission issue [None]
  - Product adhesion issue [None]

NARRATIVE: CASE EVENT DATE: 20230301
